FAERS Safety Report 21988002 (Version 4)
Quarter: 2023Q2

REPORT INFORMATION
  Report Type: Spontaneous
  Country: JP (occurrence: JP)
  Receive Date: 20230214
  Receipt Date: 20230410
  Transmission Date: 20230722
  Serious: Yes (Other)
  Sender: FDA-Public Use
  Company Number: JP-MSD-M2022-52482

PATIENT
  Age: 79 Year
  Sex: Female

DRUGS (4)
  1. LAGEVRIO [Interacting]
     Active Substance: MOLNUPIRAVIR
     Indication: COVID-19 treatment
     Dosage: 800 MILLIGRAM, BID
     Route: 048
     Dates: start: 20221119, end: 20221123
  2. WARFARIN POTASSIUM [Interacting]
     Active Substance: WARFARIN POTASSIUM
     Dosage: 0.75 MILLIGRAM/DAY
     Route: 048
     Dates: end: 202212
  3. WARFARIN POTASSIUM [Interacting]
     Active Substance: WARFARIN POTASSIUM
     Dosage: 0.5 MILLIGRAM/DAY
     Route: 048
     Dates: start: 20221216
  4. CLOPIDOGREL BISULFATE [Concomitant]
     Active Substance: CLOPIDOGREL BISULFATE
     Dosage: 75 MILLIGRAM/DAY
     Route: 065

REACTIONS (5)
  - International normalised ratio increased [Recovered/Resolved]
  - Drug interaction [Unknown]
  - Sputum increased [Unknown]
  - Feeding disorder [Unknown]
  - Condition aggravated [Unknown]

NARRATIVE: CASE EVENT DATE: 20221101
